FAERS Safety Report 5813658-7 (Version None)
Quarter: 2008Q3

REPORT INFORMATION
  Report Type: 
  Country: None (occurrence: None)
  Receive Date: 20080717
  Receipt Date: 20080711
  Transmission Date: 20090109
  Serious: Yes (Hospitalization, Other)
  Sender: FDA-Public Use
  Company Number: B0496635A

PATIENT
  Age: 63 Year
  Sex: Female
  Weight: 80 kg

DRUGS (8)
  1. ARIXTRA [Suspect]
     Indication: THROMBOSIS PROPHYLAXIS
     Dosage: 2.5MG PER DAY
     Route: 058
     Dates: start: 20071109, end: 20071113
  2. LOXONIN [Suspect]
     Indication: ANALGESIA
     Dosage: 60MG THREE TIMES PER DAY
     Route: 048
     Dates: start: 20071109, end: 20071113
  3. NORVASC [Concomitant]
     Route: 048
  4. OLMETEC [Concomitant]
     Route: 048
  5. THYRADIN [Concomitant]
     Route: 048
  6. URSO 250 [Concomitant]
     Route: 048
  7. DASEN [Concomitant]
     Route: 048
  8. SELBEX [Concomitant]
     Route: 048

REACTIONS (6)
  - DUODENAL ULCER [None]
  - HAEMATEMESIS [None]
  - HAEMATOCRIT DECREASED [None]
  - HAEMOGLOBIN DECREASED [None]
  - PLATELET COUNT INCREASED [None]
  - RED BLOOD CELL COUNT DECREASED [None]
